FAERS Safety Report 18998856 (Version 2)
Quarter: 2021Q2

REPORT INFORMATION
  Report Type: Report from Study
  Country: US (occurrence: US)
  Receive Date: 20210311
  Receipt Date: 20210423
  Transmission Date: 20210717
  Serious: Yes (Other)
  Sender: FDA-Public Use
  Company Number: US-JNJFOC-20210304962

PATIENT
  Age: 87 Year
  Sex: Female
  Weight: 73.8 kg

DRUGS (14)
  1. BUMEX [Concomitant]
     Active Substance: BUMETANIDE
     Route: 048
  2. BYSTOLIC [Concomitant]
     Active Substance: NEBIVOLOL HYDROCHLORIDE
     Route: 048
  3. ANUCORT?HC [Concomitant]
     Active Substance: HYDROCORTISONE ACETATE
     Route: 054
  4. MACITENTAN [Suspect]
     Active Substance: MACITENTAN
     Indication: PULMONARY ARTERIAL HYPERTENSION
     Route: 048
  5. DUREZOL [Concomitant]
     Active Substance: DIFLUPREDNATE
     Dosage: 0.05% DROP, 1 DROP INTO OD BID
     Route: 047
  6. VIGAMOX [Concomitant]
     Active Substance: MOXIFLOXACIN HYDROCHLORIDE
     Dosage: 0.5% OPHTHALMIC SOLUTION
     Route: 047
  7. CARDIZEM CD [Concomitant]
     Active Substance: DILTIAZEM HYDROCHLORIDE
     Route: 048
  8. COZAAR [Concomitant]
     Active Substance: LOSARTAN POTASSIUM
     Route: 048
  9. REFRESH [POLYVINYL ALCOHOL;POVIDONE] [Concomitant]
     Dosage: 1.4?0.8% OPHTHALMIC SOLUTION, 1?2 DROP INTO BOTH EYES AS NEEDED
     Route: 047
  10. OXYGEN. [Concomitant]
     Active Substance: OXYGEN
  11. ELIQUIS [Concomitant]
     Active Substance: APIXABAN
     Route: 048
  12. PRILOSEC [Concomitant]
     Active Substance: OMEPRAZOLE MAGNESIUM
     Route: 048
  13. PRAVACHOL [Concomitant]
     Active Substance: PRAVASTATIN SODIUM
     Route: 048
  14. RESTASIS [Concomitant]
     Active Substance: CYCLOSPORINE
     Dosage: 0.05 % OPHTHALMIC SUSPENSION, 1 DROP BOTH EYES EVERY 12HRS
     Route: 047

REACTIONS (6)
  - Rales [Unknown]
  - Drug ineffective [Unknown]
  - Fluid retention [Unknown]
  - Pulmonary arterial hypertension [Unknown]
  - Respiratory failure [Unknown]
  - Cardiac failure congestive [Unknown]
